FAERS Safety Report 16062352 (Version 2)
Quarter: 2019Q1

REPORT INFORMATION
  Report Type: Spontaneous
  Country: US (occurrence: US)
  Receive Date: 20190312
  Receipt Date: 20190325
  Transmission Date: 20190418
  Serious: No
  Sender: FDA-Public Use
  Company Number: US-SA-2017SA149157

PATIENT
  Age: 30 Year
  Sex: Male

DRUGS (1)
  1. FABRAZYME [Suspect]
     Active Substance: AGALSIDASE BETA
     Dosage: 70 MG/KG, BIWEEKLY
     Route: 041
     Dates: start: 20180130

REACTIONS (3)
  - Pain in extremity [Not Recovered/Not Resolved]
  - Paternal exposure during pregnancy [Unknown]
  - Antibody test positive [Unknown]
